FAERS Safety Report 4598606-2 (Version None)
Quarter: 2005Q1

REPORT INFORMATION
  Report Type: 
  Country: None (occurrence: None)
  Receive Date: 20050304
  Receipt Date: 20041119
  Transmission Date: 20050727
  Serious: Yes (Hospitalization)
  Sender: FDA-Public Use
  Company Number: DE-MERCK-0411DEU00410

PATIENT
  Age: 47 Year
  Sex: Male
  Weight: 90 kg

DRUGS (10)
  1. VIOXX [Suspect]
     Indication: SPINAL OSTEOARTHRITIS
     Route: 048
     Dates: start: 19990101, end: 20041001
  2. VIOXX [Suspect]
     Route: 048
     Dates: start: 20010101, end: 20010101
  3. VIOXX [Suspect]
     Indication: CAUDA EQUINA SYNDROME
     Route: 048
     Dates: start: 19990101, end: 20041001
  4. VIOXX [Suspect]
     Route: 048
     Dates: start: 20010101, end: 20010101
  5. [THERAPY UNSPECIFIED] [Concomitant]
     Route: 065
  6. TRAMADOL HYDROCHLORIDE [Concomitant]
     Route: 065
     Dates: start: 19930101
  7. DIPYRONE [Concomitant]
     Route: 065
     Dates: start: 19930101
  8. ATORVASTATIN CALCIUM [Concomitant]
     Route: 065
  9. TETRAZEPAM [Concomitant]
     Route: 065
     Dates: start: 19930101
  10. CLORAZEPATE DIPOTASSIUM [Concomitant]
     Route: 065
     Dates: start: 20000101, end: 20010101

REACTIONS (16)
  - ANXIETY DISORDER [None]
  - BLOOD PRESSURE INCREASED [None]
  - CARDIAC DISORDER [None]
  - CHEST PAIN [None]
  - DEPRESSION [None]
  - DISCOMFORT [None]
  - DRUG INEFFECTIVE [None]
  - DUODENITIS [None]
  - GASTRITIS [None]
  - HYPERHIDROSIS [None]
  - PAIN [None]
  - PALPITATIONS [None]
  - REFLUX OESOPHAGITIS [None]
  - TACHYCARDIA [None]
  - TREMOR [None]
  - VISUAL FIELD DEFECT [None]
